FAERS Safety Report 17707471 (Version 2)
Quarter: 2020Q2

REPORT INFORMATION
  Report Type: Report from Study
  Country: IT (occurrence: IT)
  Receive Date: 20200424
  Receipt Date: 20200504
  Transmission Date: 20200714
  Serious: Yes (Death, Life-Threatening, Hospitalization)
  Sender: FDA-Public Use
  Company Number: IT-DSJP-DSE-2020-112078

PATIENT

DRUGS (5)
  1. EDOXABAN [Suspect]
     Active Substance: EDOXABAN TOSYLATE
     Indication: EMBOLISM VENOUS
     Dosage: 60 MG, QD
     Route: 048
     Dates: start: 20200219, end: 20200413
  2. KARVEA [Concomitant]
     Active Substance: IRBESARTAN
     Indication: HYPERTENSION
     Dosage: 300 MG, ONCE EVERY 8HR
     Route: 048
     Dates: start: 20191201
  3. EUTIROX [Concomitant]
     Active Substance: LEVOTHYROXINE SODIUM
     Indication: ATRIAL FIBRILLATION
     Dosage: 25 MG, ONCE EVERY 6HR
     Route: 048
     Dates: start: 20191201
  4. LASIX [Concomitant]
     Active Substance: FUROSEMIDE
     Indication: DIURETIC THERAPY
     Dosage: 25 MG, QD
     Route: 048
     Dates: start: 20190901
  5. CORDARONE [Concomitant]
     Active Substance: AMIODARONE HYDROCHLORIDE
     Indication: ATRIAL FIBRILLATION
     Dosage: 200 MG, ONCE EVERY 8HR
     Route: 048
     Dates: start: 20190901

REACTIONS (5)
  - Loss of consciousness [Unknown]
  - Oesophagitis [Unknown]
  - Anaemia [Fatal]
  - Ischaemic cerebral infarction [Fatal]
  - Oesophageal haemorrhage [Unknown]

NARRATIVE: CASE EVENT DATE: 20200413
